FAERS Safety Report 21547692 (Version 1)
Quarter: 2022Q4

REPORT INFORMATION
  Report Type: Spontaneous
  Country: CN (occurrence: CN)
  Receive Date: 20221103
  Receipt Date: 20221103
  Transmission Date: 20230112
  Serious: Yes (Other)
  Sender: FDA-Public Use
  Company Number: CN-Clinigen Group PLC/ Clinigen Healthcare Ltd-CN-CLGN-22-00484

PATIENT
  Age: 13 Year
  Sex: Male

DRUGS (12)
  1. DEXRAZOXANE HYDROCHLORIDE [Suspect]
     Active Substance: DEXRAZOXANE HYDROCHLORIDE
     Indication: Chondrosarcoma
  2. DEXRAZOXANE HYDROCHLORIDE [Suspect]
     Active Substance: DEXRAZOXANE HYDROCHLORIDE
     Indication: Adjuvant therapy
  3. VINDESINE SULFATE [Concomitant]
     Active Substance: VINDESINE SULFATE
     Indication: Chondrosarcoma
  4. VINDESINE SULFATE [Concomitant]
     Active Substance: VINDESINE SULFATE
     Indication: Adjuvant therapy
  5. PIRARUBICIN [Concomitant]
     Active Substance: PIRARUBICIN
     Indication: Chondrosarcoma
  6. PIRARUBICIN [Concomitant]
     Active Substance: PIRARUBICIN
     Indication: Adjuvant therapy
  7. BETA ELEMENE [Concomitant]
     Indication: Chondrosarcoma
  8. BETA ELEMENE [Concomitant]
     Indication: Adjuvant therapy
  9. CYCLOPHOSPHAMIDE [Concomitant]
     Active Substance: CYCLOPHOSPHAMIDE
     Indication: Chondrosarcoma
  10. CYCLOPHOSPHAMIDE [Concomitant]
     Active Substance: CYCLOPHOSPHAMIDE
     Indication: Adjuvant therapy
  11. ENDOSTATIN [Concomitant]
     Active Substance: ENDOSTATIN
     Indication: Chondrosarcoma
  12. ENDOSTATIN [Concomitant]
     Active Substance: ENDOSTATIN
     Indication: Adjuvant therapy

REACTIONS (1)
  - Off label use [Unknown]
